FAERS Safety Report 5035742-0 (Version None)
Quarter: 2006Q2

REPORT INFORMATION
  Report Type: 
  Country: None (occurrence: None)
  Receive Date: 20060627
  Receipt Date: 20060517
  Transmission Date: 20061013
  Serious: Yes (Hospitalization, Disabling)
  Sender: FDA-Public Use
  Company Number: JP-BRISTOL-MYERS SQUIBB COMPANY-13382775

PATIENT
  Age: 83 Year
  Sex: Male

DRUGS (3)
  1. KENACORT [Suspect]
     Indication: NERVE BLOCK
     Route: 008
     Dates: start: 20030601, end: 20040101
  2. ASPIRIN [Suspect]
     Route: 048
  3. PRORENAL [Suspect]
     Route: 048

REACTIONS (3)
  - EXTRADURAL ABSCESS [None]
  - HAEMATOMA INFECTION [None]
  - PSOAS ABSCESS [None]
